FAERS Safety Report 9893530 (Version 2)
Quarter: 2014Q1

REPORT INFORMATION
  Report Type: Spontaneous
  Country: US (occurrence: US)
  Receive Date: 20140213
  Receipt Date: 20140324
  Transmission Date: 20141002
  Serious: Yes (Hospitalization)
  Sender: FDA-Public Use
  Company Number: US-SA-2014SA015285

PATIENT
  Age: 30 Year
  Sex: Male

DRUGS (1)
  1. FABRAZYME [Suspect]
     Indication: FABRY^S DISEASE
     Route: 042

REACTIONS (6)
  - Localised infection [Unknown]
  - Influenza like illness [Unknown]
  - Pyrexia [Unknown]
  - Tremor [Unknown]
  - Chills [Unknown]
  - Pain [Unknown]
